FAERS Safety Report 6335526-7 (Version None)
Quarter: 2009Q3

REPORT INFORMATION
  Report Type: 
  Country: None (occurrence: None)
  Receive Date: 20090831
  Receipt Date: 20090819
  Transmission Date: 20100115
  Serious: Yes (Hospitalization, Disabling, Other)
  Sender: FDA-Public Use
  Company Number: US-PFIZER INC-2008047705

PATIENT
  Sex: Male
  Weight: 95 kg

DRUGS (2)
  1. CHANTIX [Suspect]
     Dosage: UNK
     Dates: start: 20070601, end: 20071101
  2. PROSCAR [Concomitant]
     Indication: ALOPECIA
     Dosage: UNK

REACTIONS (9)
  - BENIGN INTRACRANIAL HYPERTENSION [None]
  - BLOOD PRESSURE INCREASED [None]
  - CARDIOVASCULAR DISORDER [None]
  - CHEST PAIN [None]
  - CSF TEST ABNORMAL [None]
  - DIPLOPIA [None]
  - HEADACHE [None]
  - PYREXIA [None]
  - VITH NERVE PARALYSIS [None]
